FAERS Safety Report 12576354 (Version 1)
Quarter: 2016Q3

REPORT INFORMATION
  Report Type: Report from Study
  Country: CO (occurrence: CO)
  Receive Date: 20160720
  Receipt Date: 20160720
  Transmission Date: 20161109
  Serious: Yes (Death)
  Sender: FDA-Public Use
  Company Number: CO-ABBVIE-16P-036-1680498-00

PATIENT
  Age: 54 Year
  Sex: Female

DRUGS (1)
  1. ZEMPLAR [Suspect]
     Active Substance: PARICALCITOL
     Indication: HYPERPARATHYROIDISM SECONDARY
     Dosage: POSTDIALYSIS
     Route: 042
     Dates: start: 20150316, end: 20160611

REACTIONS (3)
  - Urinary tract infection [Fatal]
  - Somnolence [Fatal]
  - Endocarditis bacterial [Fatal]

NARRATIVE: CASE EVENT DATE: 20160611
